FAERS Safety Report 9735067 (Version 2)
Quarter: 2014Q1

REPORT INFORMATION
  Report Type: Spontaneous
  Country: US (occurrence: US)
  Receive Date: 20131206
  Receipt Date: 20140113
  Transmission Date: 20141002
  Serious: Yes (Hospitalization)
  Sender: FDA-Public Use
  Company Number: US-AMGEN-USASP2013085277

PATIENT
  Age: 61 Year
  Sex: Female
  Weight: 49.43 kg

DRUGS (3)
  1. ENBREL [Suspect]
     Indication: RHEUMATOID ARTHRITIS
     Dosage: 50 MG, QWK
     Route: 058
     Dates: start: 20080430, end: 20131002
  2. OMEPRAZOLE [Concomitant]
     Indication: PAIN
     Dosage: 20 MG, QD
     Route: 048
  3. TYLENOL                            /00020001/ [Concomitant]
     Indication: PAIN
     Dosage: 650 MG, EVERY 4HRS
     Route: 048

REACTIONS (1)
  - T-cell lymphoma [Not Recovered/Not Resolved]
